FAERS Safety Report 9234114 (Version 1)
Quarter: 2013Q2

REPORT INFORMATION
  Report Type: Spontaneous
  Country: US (occurrence: US)
  Receive Date: 20130416
  Receipt Date: 20130416
  Transmission Date: 20140414
  Serious: Yes (Hospitalization)
  Sender: FDA-Public Use
  Company Number: US-ELI_LILLY_AND_COMPANY-US201304002515

PATIENT
  Age: 81 Year
  Sex: Female

DRUGS (11)
  1. FORTEO [Suspect]
     Indication: OSTEOPOROSIS
     Dosage: UNK, QD
     Dates: start: 201302
  2. AMLODIPINE [Concomitant]
  3. OMEPRAZOLE [Concomitant]
  4. MEVACOR [Concomitant]
  5. CLARITIN [Concomitant]
  6. FLONASE [Concomitant]
  7. CALCIUM [Concomitant]
     Dosage: 1200 MG, UNKNOWN
  8. MULTIVITAMIN [Concomitant]
  9. TYLENOL /00020001/ [Concomitant]
  10. KLOR-CON [Concomitant]
     Dosage: 10 MEQ, UNKNOWN
  11. VESICARE [Concomitant]

REACTIONS (1)
  - Arrhythmia [Unknown]
